FAERS Safety Report 10428674 (Version 1)
Quarter: 2014Q3

REPORT INFORMATION
  Report Type: Spontaneous
  Country: DE (occurrence: None)
  Receive Date: 20140829
  Receipt Date: 20140829
  Transmission Date: 20150326
  Serious: Yes (Hospitalization)
  Sender: FDA-Public Use
  Company Number: 2014080062

PATIENT
  Age: 66 Year
  Sex: Male
  Weight: 68 kg

DRUGS (3)
  1. TORASEMIDE (TORASEMIDE) [Suspect]
     Active Substance: TORSEMIDE
     Route: 048
  2. SPIRONOLACTON [Suspect]
     Active Substance: SPIRONOLACTONE
     Route: 048
  3. CANDESARTAN (CANDESARTAN) [Suspect]
     Active Substance: CANDESARTAN
     Route: 048

REACTIONS (1)
  - Ageusia [None]

NARRATIVE: CASE EVENT DATE: 20140801
